FAERS Safety Report 4853912-9 (Version None)
Quarter: 2005Q4

REPORT INFORMATION
  Report Type: 
  Country: None (occurrence: None)
  Receive Date: 20051214
  Receipt Date: 20051005
  Transmission Date: 20060501
  Serious: Yes (Death, Hospitalization)
  Sender: FDA-Public Use
  Company Number: US-MERCK-0510USA04040

PATIENT
  Age: 91 Year
  Sex: Female
  Weight: 52 kg

DRUGS (5)
  1. VIOXX [Suspect]
     Indication: ARTHRITIS
     Route: 048
     Dates: start: 20010101, end: 20030101
  2. TOPROL-XL [Concomitant]
     Route: 065
  3. FOSAMAX [Concomitant]
     Route: 065
  4. CELEBREX [Concomitant]
     Route: 065
  5. DIOVAN [Concomitant]
     Route: 065

REACTIONS (7)
  - CARDIAC FAILURE CONGESTIVE [None]
  - CHRONIC OBSTRUCTIVE PULMONARY DISEASE [None]
  - DYSPNOEA [None]
  - HIP FRACTURE [None]
  - LOWER LIMB FRACTURE [None]
  - PNEUMONIA ASPIRATION [None]
  - PULMONARY HYPERTENSION [None]
